FAERS Safety Report 8875728 (Version 2)
Quarter: 2012Q4

REPORT INFORMATION
  Report Type: Report from Study
  Country: CO (occurrence: CO)
  Receive Date: 20121030
  Receipt Date: 20121105
  Transmission Date: 20130627
  Serious: Yes (Hospitalization)
  Sender: FDA-Public Use
  Company Number: PHHO2012CO015253

PATIENT
  Age: 58 Year
  Sex: Female
  Weight: 76 kg

DRUGS (9)
  1. BLINDED ACZ885 [Suspect]
     Indication: CARDIOVASCULAR EVENT PROPHYLAXIS
     Dosage: Code not broken
     Route: 058
     Dates: start: 20120905
  2. BLINDED NO TREATMENT RECEIVED [Suspect]
     Indication: CARDIOVASCULAR EVENT PROPHYLAXIS
     Dosage: Code not broken
     Route: 058
     Dates: start: 20120905
  3. BLINDED PLACEBO [Suspect]
     Indication: CARDIOVASCULAR EVENT PROPHYLAXIS
     Dosage: Code not broken
     Route: 058
     Dates: start: 20120905
  4. CLOPIDOGREL [Concomitant]
     Indication: CARDIOVASCULAR EVENT PROPHYLAXIS
     Dosage: 75 mg/day
     Route: 048
     Dates: start: 20120425
  5. ASA [Concomitant]
     Indication: CARDIOVASCULAR EVENT PROPHYLAXIS
     Dosage: 100 mg/day
     Route: 048
     Dates: start: 20120425
  6. ATORVASTATIN [Concomitant]
     Indication: HYPERCHOLESTEROLAEMIA
     Dosage: 40 mg/day
     Route: 048
     Dates: start: 20120425
  7. METOPROLOL [Concomitant]
     Indication: HYPERTENSION
     Dosage: 50 mg, BID
     Route: 048
     Dates: start: 20120925
  8. ENALAPRIL [Concomitant]
     Indication: HYPERTENSION
     Dosage: 20 mg, BID
     Route: 048
     Dates: start: 20120828
  9. FUROSEMIDE [Concomitant]
     Indication: HYPERTENSION
     Dosage: 40 mg/day
     Route: 048
     Dates: start: 20120828

REACTIONS (1)
  - Cellulitis [Recovering/Resolving]
